FAERS Safety Report 17807906 (Version 2)
Quarter: 2020Q2

REPORT INFORMATION
  Report Type: Spontaneous
  Country: JP (occurrence: JP)
  Receive Date: 20200520
  Receipt Date: 20200608
  Transmission Date: 20200714
  Serious: Yes (Hospitalization, Other)
  Sender: FDA-Public Use
  Company Number: JP-ACCORD-182193

PATIENT
  Age: 57 Year
  Sex: Male
  Weight: 64 kg

DRUGS (4)
  1. OXALIPLATIN. [Suspect]
     Active Substance: OXALIPLATIN
     Indication: RECTAL CANCER
     Dosage: 150 MG/BODY
     Route: 042
  2. FLUOROURACIL. [Suspect]
     Active Substance: FLUOROURACIL
     Indication: RECTAL CANCER
     Dosage: 700 MG/BODY, ALSO RECEIVED 4300 MG/BODY INTRAVENOUS DRIP
     Route: 042
  3. LEVOFOLINIC ACID [Suspect]
     Active Substance: LEVOLEUCOVORIN
     Indication: RECTAL CANCER
     Dosage: 360 MG/BODY
     Route: 042
  4. PANITUMUMAB [Suspect]
     Active Substance: PANITUMUMAB
     Indication: RECTAL CANCER
     Dosage: 440 MG/BODY
     Route: 042

REACTIONS (6)
  - Neck pain [Recovered/Resolved]
  - Vascular pain [Recovered/Resolved]
  - Jugular vein thrombosis [Recovered/Resolved]
  - Vertebral artery dissection [Unknown]
  - Phlebitis [Recovered/Resolved]
  - Wrong technique in device usage process [Unknown]
